FAERS Safety Report 19722597 (Version 1)
Quarter: 2021Q3

REPORT INFORMATION
  Report Type: Spontaneous
  Country: US (occurrence: US)
  Receive Date: 20210819
  Receipt Date: 20210819
  Transmission Date: 20211014
  Serious: No
  Sender: FDA-Public Use
  Company Number: US-HORIZON THERAPEUTICS-HZN-2021-004359

PATIENT

DRUGS (1)
  1. TEPEZZA [Suspect]
     Active Substance: TEPROTUMUMAB-TRBW
     Indication: ENDOCRINE OPHTHALMOPATHY
     Dosage: 8TH INFUSION
     Dates: start: 20210217, end: 20210217

REACTIONS (4)
  - Fatigue [Unknown]
  - Tinnitus [Not Recovered/Not Resolved]
  - Taste disorder [Unknown]
  - Blood blister [Recovered/Resolved]
